FAERS Safety Report 5797141-3 (Version None)
Quarter: 2008Q3

REPORT INFORMATION
  Report Type: 
  Country: None (occurrence: None)
  Receive Date: 20080701
  Receipt Date: 20080620
  Transmission Date: 20090109
  Serious: Yes (Hospitalization)
  Sender: FDA-Public Use
  Company Number: PHHY2008NO11579

PATIENT
  Sex: Female

DRUGS (8)
  1. VOLTAREN [Suspect]
     Indication: BURSITIS
     Dosage: 50 MG X 3/ DAY
  2. IBUX [Suspect]
     Dosage: 0-2400 MG/DAY
     Route: 048
  3. PRAVACHOL [Concomitant]
     Dosage: 40 MG, QD
     Route: 048
  4. CENTYL [Concomitant]
     Dosage: 5 MG, QD
     Route: 048
  5. FURIX [Concomitant]
     Dosage: 20 MG, QD
     Route: 048
  6. RAMIPRIL [Concomitant]
     Dosage: 20 UNK, QD
     Route: 048
  7. LEVOTHYROXINE SODIUM [Concomitant]
     Dosage: 100 UNK, QD
     Route: 048
  8. CETIRIZINE HCL [Concomitant]
     Dosage: 10 MG, QD
     Route: 048

REACTIONS (6)
  - ABDOMINAL PAIN UPPER [None]
  - COLONOSCOPY [None]
  - GASTRITIS EROSIVE [None]
  - INFECTION [None]
  - MELAENA [None]
  - VOMITING [None]
